FAERS Safety Report 18355434 (Version 1)
Quarter: 2020Q4

REPORT INFORMATION
  Report Type: Spontaneous
  Country: US (occurrence: US)
  Receive Date: 20201007
  Receipt Date: 20201007
  Transmission Date: 20210114
  Serious: Yes (Other)
  Sender: FDA-Public Use
  Company Number: US-ROCHE-2690965

PATIENT
  Age: 65 Year
  Sex: Male

DRUGS (4)
  1. ACTEMRA [Suspect]
     Active Substance: TOCILIZUMAB
     Indication: COVID-19
     Dosage: 800 MG X 3 DOSES TOTAL ;ONGOING: NO
     Route: 042
     Dates: start: 20200928, end: 20200928
  2. DEXAMETHASONE. [Concomitant]
     Active Substance: DEXAMETHASONE
     Indication: COVID-19
     Dosage: 6 MG X 10 DAYS ;ONGOING: YES, INTERVAL:1 DAYS
     Dates: start: 20200929
  3. REMDESIVIR. [Concomitant]
     Active Substance: REMDESIVIR
     Indication: COVID-19
     Dosage: DAY 1 DOSE
  4. REMDESIVIR. [Concomitant]
     Active Substance: REMDESIVIR
     Dosage: FOLLOWED BY 100 MG DAILY FOR 4 DAYS

REACTIONS (3)
  - Pulmonary embolism [Recovering/Resolving]
  - Intentional product use issue [Unknown]
  - Off label use [Unknown]

NARRATIVE: CASE EVENT DATE: 20200928
